FAERS Safety Report 9437639 (Version 1)
Quarter: 2013Q3

REPORT INFORMATION
  Report Type: Spontaneous
  Country: US (occurrence: None)
  Receive Date: 20130731
  Receipt Date: 20130731
  Transmission Date: 20140515
  Serious: Yes (Disabling, Other)
  Sender: FDA-Public Use
  Company Number: 1307-941

PATIENT
  Age: 90 Year
  Sex: Male

DRUGS (6)
  1. EYLEA [Suspect]
     Indication: AGE-RELATED MACULAR DEGENERATION
     Dosage: 2 MG, 1 IN 5 WK, INTRAVITREAL
  2. SIMVASTIN ( SIMVASTIN) [Concomitant]
  3. LANTUS (INSULIN GLARGINE) [Concomitant]
  4. LASIX ( FUROSEMIDE) [Concomitant]
  5. BABY ASPIRIN (ACETYLSALICYLIC ACID) [Concomitant]
  6. VITAMINS ( VITAMIN NOS) [Concomitant]

REACTIONS (4)
  - Vitritis [None]
  - Anterior chamber inflammation [None]
  - Visual acuity reduced [None]
  - Blindness transient [None]
